FAERS Safety Report 18545388 (Version 1)
Quarter: 2020Q4

REPORT INFORMATION
  Report Type: Spontaneous
  Country: CA (occurrence: US)
  Receive Date: 20201125
  Receipt Date: 20201125
  Transmission Date: 20210114
  Serious: No
  Sender: FDA-Public Use
  Company Number: CA-009507513-2011USA011114

PATIENT

DRUGS (1)
  1. KEYTRUDA [Suspect]
     Active Substance: PEMBROLIZUMAB
     Dosage: 7 TRATMENTS SO FAR

REACTIONS (3)
  - Cheilitis [Unknown]
  - Gingival pain [Unknown]
  - Melanocytic naevus [Unknown]
